FAERS Safety Report 4836995-1 (Version None)
Quarter: 2005Q4

REPORT INFORMATION
  Report Type: 
  Country: None (occurrence: None)
  Receive Date: 20051121
  Receipt Date: 20051102
  Transmission Date: 20060501
  Serious: Yes (Hospitalization)
  Sender: FDA-Public Use
  Company Number: 107994ISR

PATIENT
  Age: 38 Year
  Sex: Female

DRUGS (8)
  1. ETOPOSIDE [Suspect]
     Indication: LYMPHOMA
     Dosage: 210 MILLIGRAM QM, INTRAVENOUS (NOS)
     Route: 042
     Dates: start: 20050408, end: 20050823
  2. CYCLOPHOSPHAMIDE [Suspect]
     Indication: LYMPHOMA
     Dosage: 1.2 GRAM QM, INTRAVENOUS (NOS)
     Route: 042
     Dates: start: 20050408, end: 20050823
  3. DOXORUBICIN [Suspect]
     Indication: LYMPHOMA
     Dosage: 52 MILLIGRAM QM, INTRAVENOUS (NOS)
     Route: 042
     Dates: start: 20050408, end: 20050823
  4. MABTHERA (RITHUXIMAB) [Suspect]
     Indication: LYMPHOMA
     Dosage: 780 MILLIGRAM QM, INTRAVENOUS (NOS)
     Route: 042
     Dates: start: 20050408, end: 20050823
  5. NOMEGESTROL ACETATE [Suspect]
     Dosage: 5 MILLIGRAM
  6. ARANESP [Suspect]
  7. METOCLOPRAMIDE [Concomitant]
  8. FERROUS SULFATE TAB [Concomitant]

REACTIONS (11)
  - CYANOSIS [None]
  - DEEP VEIN THROMBOSIS [None]
  - DEVICE RELATED INFECTION [None]
  - DIARRHOEA [None]
  - DYSPNOEA [None]
  - GROIN PAIN [None]
  - ORAL CANDIDIASIS [None]
  - PAIN IN EXTREMITY [None]
  - PHLEBITIS [None]
  - PULMONARY EMBOLISM [None]
  - STAPHYLOCOCCAL INFECTION [None]
